FAERS Safety Report 7247111-3 (Version None)
Quarter: 2011Q1

REPORT INFORMATION
  Report Type: 
  Country: None (occurrence: None)
  Receive Date: 20110127
  Receipt Date: 20100601
  Transmission Date: 20110831
  Serious: No
  Sender: FDA-Public Use
  Company Number: US-BAUSCH-2010BL002951

PATIENT
  Age: 72 Year
  Sex: Male

DRUGS (3)
  1. ALAWAY [Suspect]
     Indication: EYE PRURITUS
     Route: 047
     Dates: start: 20100601
  2. FOLIC ACID [Concomitant]
     Indication: PRODUCT USED FOR UNKNOWN INDICATION
  3. ENALAPRIL [Concomitant]
     Indication: HYPERTENSION

REACTIONS (2)
  - INCORRECT DOSE ADMINISTERED [None]
  - INSTILLATION SITE PAIN [None]
